FAERS Safety Report 24829579 (Version 1)
Quarter: 2025Q1

REPORT INFORMATION
  Report Type: Report from Study
  Country: US (occurrence: US)
  Receive Date: 20250110
  Receipt Date: 20250110
  Transmission Date: 20250409
  Serious: Yes (Hospitalization, Other)
  Sender: ROCHE
  Company Number: US-ROCHE-3439780

PATIENT
  Age: 53 Year
  Sex: Female
  Weight: 90.72 kg

DRUGS (22)
  1. OCREVUS [Suspect]
     Active Substance: OCRELIZUMAB
     Indication: Relapsing-remitting multiple sclerosis
     Dosage: 300MG SINGLE-VIAL USE, DATE OF TREATMENT: 08/DEC/2021, 07/DEC/2022
     Route: 042
     Dates: start: 2021, end: 20220402
  2. OCREVUS [Suspect]
     Active Substance: OCRELIZUMAB
     Dosage: THEN 600 MG EVERY 6 MONTH
     Route: 042
  3. LEVAQUIN [Suspect]
     Active Substance: LEVOFLOXACIN
     Indication: Product used for unknown indication
     Route: 048
     Dates: end: 20241220
  4. CLONAZEPAM [Concomitant]
     Active Substance: CLONAZEPAM
  5. BACLOFEN [Concomitant]
     Active Substance: BACLOFEN
  6. LODINE [Concomitant]
     Active Substance: ETODOLAC
  7. AVONEX [Concomitant]
     Active Substance: INTERFERON BETA-1A
  8. SEROQUEL [Concomitant]
     Active Substance: QUETIAPINE FUMARATE
  9. AZITHROMYCIN [Concomitant]
     Active Substance: AZITHROMYCIN
  10. DOXYCYCLINE [Concomitant]
     Active Substance: DOXYCYCLINE
  11. CETIRIZINE [Concomitant]
     Active Substance: CETIRIZINE HYDROCHLORIDE
  12. VITAMIN C [Concomitant]
     Active Substance: ASCORBIC ACID
  13. FAMOTIDINE [Concomitant]
     Active Substance: FAMOTIDINE
  14. KETOTIFEN [Concomitant]
     Active Substance: KETOTIFEN
  15. KETOTIFEN [Concomitant]
     Active Substance: KETOTIFEN
  16. HERBALS\TURMERIC [Concomitant]
     Active Substance: HERBALS\TURMERIC
  17. XYZAL [Concomitant]
     Active Substance: LEVOCETIRIZINE DIHYDROCHLORIDE
  18. oil of oregano [Concomitant]
  19. ALLEGRA [Concomitant]
     Active Substance: FEXOFENADINE HYDROCHLORIDE
  20. PROBIOTICS NOS [Concomitant]
     Active Substance: PROBIOTICS NOS
  21. MAGNESIUM CITRATE [Concomitant]
     Active Substance: MAGNESIUM CITRATE
  22. TIZANIDINE [Concomitant]
     Active Substance: TIZANIDINE

REACTIONS (8)
  - Meningioma [Recovered/Resolved]
  - Visual impairment [Not Recovered/Not Resolved]
  - Vasogenic cerebral oedema [Unknown]
  - Atypical pneumonia [Recovering/Resolving]
  - Pneumonia legionella [Recovering/Resolving]
  - Lyme disease [Not Recovered/Not Resolved]
  - Mast cell activation syndrome [Not Recovered/Not Resolved]
  - Rash [Not Recovered/Not Resolved]

NARRATIVE: CASE EVENT DATE: 20230101
